FAERS Safety Report 7250716-7 (Version None)
Quarter: 2011Q1

REPORT INFORMATION
  Report Type: 
  Country: None (occurrence: None)
  Receive Date: 20110128
  Receipt Date: 20110124
  Transmission Date: 20110831
  Serious: Yes (Other)
  Sender: FDA-Public Use
  Company Number: BR-ABBOTT-10P-020-0634512-00

PATIENT
  Sex: Female
  Weight: 53 kg

DRUGS (11)
  1. SYNTHROID [Suspect]
     Indication: HYPERTHYROIDISM
     Route: 048
     Dates: start: 20100322
  2. SYNTHROID [Suspect]
  3. SYNTHROID [Suspect]
  4. CLORANA [Concomitant]
     Indication: BLOOD PRESSURE
  5. SYNTHROID [Suspect]
     Dates: start: 20050101
  6. COZAAR [Concomitant]
     Indication: HYPERTENSION
     Route: 048
  7. PANTOPRAZOLE [Concomitant]
     Indication: PROPHYLAXIS AGAINST GASTROINTESTINAL ULCER
     Route: 048
     Dates: start: 20101227
  8. CLORANA [Concomitant]
     Indication: HYPERTENSION
     Route: 048
  9. TENAVIT [Concomitant]
     Indication: VITAMIN SUPPLEMENTATION
     Route: 048
  10. RESURGIPLUS [Concomitant]
     Indication: PRODUCT USED FOR UNKNOWN INDICATION
  11. OMEPRAZOLE [Concomitant]
     Indication: GASTRIC DISORDER
     Route: 048
     Dates: start: 20020101

REACTIONS (8)
  - DECREASED APPETITE [None]
  - BEDRIDDEN [None]
  - HYPERHIDROSIS [None]
  - ABDOMINAL PAIN UPPER [None]
  - BREAST CANCER [None]
  - MUSCLE SPASMS [None]
  - VASCULAR OCCLUSION [None]
  - WEIGHT DECREASED [None]
